FAERS Safety Report 19487643 (Version 2)
Quarter: 2021Q3

REPORT INFORMATION
  Report Type: Spontaneous
  Country: US (occurrence: US)
  Receive Date: 20210702
  Receipt Date: 20210809
  Transmission Date: 20211014
  Serious: Yes (Life-Threatening, Hospitalization)
  Sender: FDA-Public Use
  Company Number: US-ASTRAZENECA-2021A579580

PATIENT
  Age: 76 Year
  Sex: Female
  Weight: 76.7 kg

DRUGS (2)
  1. SYMBICORT [Suspect]
     Active Substance: BUDESONIDE\FORMOTEROL FUMARATE DIHYDRATE
     Indication: CHRONIC OBSTRUCTIVE PULMONARY DISEASE
     Dosage: 160 UG,2 PUFFS, TWO TIMES A DAY
     Route: 055
  2. SYMBICORT [Suspect]
     Active Substance: BUDESONIDE\FORMOTEROL FUMARATE DIHYDRATE
     Indication: COUGH
     Dosage: 160 UG,2 PUFFS, TWO TIMES A DAY
     Route: 055

REACTIONS (7)
  - Pain in extremity [Recovered/Resolved]
  - Wrong technique in device usage process [Unknown]
  - Device delivery system issue [Unknown]
  - Drug ineffective [Unknown]
  - Ventricular fibrillation [Recovered/Resolved]
  - Arterial occlusive disease [Recovered/Resolved]
  - Pain in jaw [Recovered/Resolved]

NARRATIVE: CASE EVENT DATE: 2019
